FAERS Safety Report 23742322 (Version 1)
Quarter: 2024Q2

REPORT INFORMATION
  Report Type: Spontaneous
  Country: US (occurrence: None)
  Receive Date: 20240413
  Receipt Date: 20240413
  Transmission Date: 20240716
  Serious: No
  Sender: FDA-Public Use
  Company Number: None

PATIENT
  Age: 37 Year
  Sex: Male
  Weight: 84.4 kg

DRUGS (4)
  1. CYCLOPHOSPHAMIDE [Suspect]
     Active Substance: CYCLOPHOSPHAMIDE
  2. METHOTREXATE [Concomitant]
     Active Substance: METHOTREXATE
  3. PONATINIB HYDROCHLORIDE [Concomitant]
  4. PREDNISONE [Concomitant]

REACTIONS (3)
  - Febrile neutropenia [None]
  - Colitis [None]
  - Headache [None]

NARRATIVE: CASE EVENT DATE: 20240208
